FAERS Safety Report 21221331 (Version 1)
Quarter: 2022Q3

REPORT INFORMATION
  Report Type: Other
  Country: US (occurrence: None)
  Receive Date: 20220817
  Receipt Date: 20220817
  Transmission Date: 20221027
  Serious: Yes (Hospitalization)
  Sender: FDA-Public Use
  Company Number: US-ROCHE-2511922

PATIENT
  Sex: Female

DRUGS (18)
  1. COTELLIC [Suspect]
     Active Substance: COBIMETINIB
     Indication: Thyroid cancer
     Dosage: TAKE 3 TABLET(S) BY MOUTH EVERY DAY FOR 21 DAYS, THEN 7 DAYS OFF
     Route: 048
  2. ZELBORAF [Suspect]
     Active Substance: VEMURAFENIB
     Indication: Thyroid cancer
     Dosage: TAKE 3 TABLET(S) BY MOUTH TWICE A DAY
     Route: 048
  3. EFUDEX [Concomitant]
     Active Substance: FLUOROURACIL
     Dosage: APPLY SPARINGLY TO AFFECTED AREA ON NOSE BID FOR 3 WEEKS , THE STOP AVOID SUN
  4. ONDANSETRON [Concomitant]
     Active Substance: ONDANSETRON
  5. PROCHLORPERAZINE [Concomitant]
     Active Substance: PROCHLORPERAZINE
  6. DOXYCYCLINE [Concomitant]
     Active Substance: DOXYCYCLINE
  7. VEMURAFENIB [Concomitant]
     Active Substance: VEMURAFENIB
  8. ZINC SULFATE [Concomitant]
     Active Substance: ZINC SULFATE
  9. ASPIRIN [Concomitant]
     Active Substance: ASPIRIN
  10. CALCIUM CARBONATE [Concomitant]
     Active Substance: CALCIUM CARBONATE
  11. MAGNESIUM CHLORIDE [Concomitant]
     Active Substance: MAGNESIUM CHLORIDE
  12. FLECAINIDE [Concomitant]
     Active Substance: FLECAINIDE
  13. LEVOTHYROXINE [Concomitant]
     Active Substance: LEVOTHYROXINE
  14. METOPROLOL TARTRATE [Concomitant]
     Active Substance: METOPROLOL TARTRATE
  15. PANTOPRAZOLE [Concomitant]
     Active Substance: PANTOPRAZOLE
  16. PRAVASTATIN [Concomitant]
     Active Substance: PRAVASTATIN
  17. VITAMIN D3 [Concomitant]
     Active Substance: CHOLECALCIFEROL
  18. FERROUS SULFATE [Concomitant]
     Active Substance: FERROUS SULFATE

REACTIONS (6)
  - Ulcer haemorrhage [Recovered/Resolved]
  - Gastric haemorrhage [Unknown]
  - Aphthous ulcer [Unknown]
  - Illness [Unknown]
  - Off label use [Unknown]
  - Off label use [Unknown]
